FAERS Safety Report 25591334 (Version 3)
Quarter: 2025Q4

REPORT INFORMATION
  Report Type: Report from Study
  Country: JP (occurrence: JP)
  Receive Date: 20250722
  Receipt Date: 20251030
  Transmission Date: 20260117
  Serious: Yes (Hospitalization)
  Sender: ABBVIE
  Company Number: JP-ABBVIE-6132858

PATIENT
  Age: 74 Year
  Sex: Male

DRUGS (5)
  1. VYALEV [Suspect]
     Active Substance: FOSCARBIDOPA\FOSLEVODOPA
     Indication: Parkinson^s disease
     Dosage: STANDARD: 0.38?FIRST AND LAST ADMIN DATE: FEB 2025
     Route: 058
  2. VYALEV [Suspect]
     Active Substance: FOSCARBIDOPA\FOSLEVODOPA
     Dosage: 3.3?FIRST AND LAST ADMIN DATE: FEB 2025
     Route: 058
  3. VYALEV [Suspect]
     Active Substance: FOSCARBIDOPA\FOSLEVODOPA
     Dosage: 0.27, ?LAST ADMIN DATE: FEB 2025
     Route: 058
     Dates: start: 20250206
  4. VYALEV [Suspect]
     Active Substance: FOSCARBIDOPA\FOSLEVODOPA
     Dosage: 0.3?FIRST AND LAST ADMIN DATE: FEB 2025
     Route: 058
  5. VYALEV [Suspect]
     Active Substance: FOSCARBIDOPA\FOSLEVODOPA
     Dosage: 9.6 ML/DAY, FIRST ADMIN DATE: 2025
     Route: 058
     Dates: end: 20251020

REACTIONS (10)
  - Malaise [Unknown]
  - Infusion site reaction [Recovered/Resolved]
  - Malaise [Unknown]
  - Oedema peripheral [Unknown]
  - Infusion site induration [Unknown]
  - Infusion site discharge [Unknown]
  - Infusion site reaction [Unknown]
  - Heat illness [Unknown]
  - Infusion site cellulitis [Unknown]
  - Device difficult to use [Unknown]

NARRATIVE: CASE EVENT DATE: 20250101
